FAERS Safety Report 5657299-3 (Version None)
Quarter: 2008Q1

REPORT INFORMATION
  Report Type: 
  Country: None (occurrence: None)
  Receive Date: 20080310
  Receipt Date: 20080227
  Transmission Date: 20080703
  Serious: Yes (Other)
  Sender: FDA-Public Use
  Company Number: US-PFIZER INC-2008018975

PATIENT
  Sex: Male

DRUGS (2)
  1. LYRICA [Suspect]
     Indication: PAIN IN EXTREMITY
  2. LYRICA [Suspect]
     Indication: HYPOAESTHESIA

REACTIONS (1)
  - DIABETES MELLITUS [None]
